FAERS Safety Report 18218847 (Version 1)
Quarter: 2020Q3

REPORT INFORMATION
  Report Type: Spontaneous
  Country: US (occurrence: US)
  Receive Date: 20200901
  Receipt Date: 20200901
  Transmission Date: 20201103
  Serious: Yes (Hospitalization)
  Sender: FDA-Public Use
  Company Number: None

PATIENT
  Age: 73 Year
  Sex: Male
  Weight: 82 kg

DRUGS (2)
  1. RIVAROXABAN (RIVAROXABAN 20MG TAB) [Suspect]
     Active Substance: RIVAROXABAN
     Indication: DEEP VEIN THROMBOSIS
     Route: 048
     Dates: start: 20200212, end: 20200323
  2. ASPIRIN (ASPIRIN 81MG TAB EC) [Suspect]
     Active Substance: ASPIRIN
     Indication: DEEP VEIN THROMBOSIS
     Route: 048
     Dates: start: 20060815

REACTIONS (5)
  - Mental status changes [None]
  - Haemoglobin decreased [None]
  - Benign gastric neoplasm [None]
  - Dysarthria [None]
  - Blood pressure decreased [None]

NARRATIVE: CASE EVENT DATE: 20200323
